FAERS Safety Report 4861741-5 (Version None)
Quarter: 2005Q4

REPORT INFORMATION
  Report Type: 
  Country: None (occurrence: None)
  Receive Date: 20051220
  Receipt Date: 20050915
  Transmission Date: 20060501
  Serious: Yes (Hospitalization)
  Sender: FDA-Public Use
  Company Number: US-MERCK-0509USA02474

PATIENT
  Age: 64 Year
  Sex: Male
  Weight: 82 kg

DRUGS (11)
  1. VIOXX [Suspect]
     Indication: BACK PAIN
     Route: 048
     Dates: start: 19991012, end: 20040930
  2. VIOXX [Suspect]
     Indication: ARTHRITIS
     Route: 048
     Dates: start: 19991012, end: 20040930
  3. DARVOCET-N 100 [Concomitant]
     Route: 065
     Dates: start: 19971101
  4. [THERAPY UNSPECIFIED] [Concomitant]
     Route: 065
  5. ULTRAM [Concomitant]
     Route: 065
     Dates: start: 19991022, end: 20020925
  6. LANOXIN [Concomitant]
     Route: 065
  7. LOPRESSOR [Concomitant]
     Route: 065
  8. OXYCODONE [Concomitant]
     Route: 065
  9. VICODIN [Concomitant]
     Route: 065
  10. [THERAPY UNSPECIFIED] [Concomitant]
     Route: 065
  11. ULTRACET [Concomitant]
     Route: 065
     Dates: start: 20020925, end: 20031101

REACTIONS (52)
  - ABDOMINAL PAIN [None]
  - ANGINA UNSTABLE [None]
  - ANXIETY [None]
  - AORTIC VALVE INCOMPETENCE [None]
  - ARTERIOSCLEROSIS [None]
  - ASBESTOSIS [None]
  - ASTHENIA [None]
  - ATELECTASIS [None]
  - ATRIAL FIBRILLATION [None]
  - AUTONOMIC NERVOUS SYSTEM IMBALANCE [None]
  - BRADYCARDIA [None]
  - BRONCHITIS [None]
  - CARDIAC FAILURE CONGESTIVE [None]
  - CAROTID ARTERY DISEASE [None]
  - CAROTID ARTERY OCCLUSION [None]
  - CAROTID ARTERY STENOSIS [None]
  - CARPAL TUNNEL SYNDROME [None]
  - CEREBROVASCULAR ACCIDENT [None]
  - CERVICOBRACHIAL SYNDROME [None]
  - CORONARY ARTERY DISEASE [None]
  - CORONARY ARTERY STENOSIS [None]
  - DEPRESSION [None]
  - DIABETES MELLITUS NON-INSULIN-DEPENDENT [None]
  - DIAPHRAGMATIC PARALYSIS [None]
  - DILATATION ATRIAL [None]
  - DYSGEUSIA [None]
  - DYSPNOEA [None]
  - DYSPNOEA EXERTIONAL [None]
  - EMOTIONAL DISTRESS [None]
  - FUNGAL INFECTION [None]
  - GYNAECOMASTIA [None]
  - HYPOGEUSIA [None]
  - MITRAL VALVE INCOMPETENCE [None]
  - MUSCULOSKELETAL CHEST PAIN [None]
  - MYOCARDIAL INFARCTION [None]
  - MYOCARDIAL ISCHAEMIA [None]
  - OEDEMA PERIPHERAL [None]
  - PERIPHERAL VASCULAR DISORDER [None]
  - PLEURAL EFFUSION [None]
  - POST PROCEDURAL COMPLICATION [None]
  - PYREXIA [None]
  - RADICULOPATHY [None]
  - SECRETION DISCHARGE [None]
  - STAPHYLOCOCCAL INFECTION [None]
  - SYNCOPE [None]
  - SYNOVITIS [None]
  - TENDONITIS [None]
  - TENOSYNOVITIS [None]
  - TRANSIENT ISCHAEMIC ATTACK [None]
  - UPPER RESPIRATORY TRACT INFECTION [None]
  - VENTRICULAR EXTRASYSTOLES [None]
  - VENTRICULAR HYPERTROPHY [None]
